FAERS Safety Report 22596234 (Version 1)
Quarter: 2023Q2

REPORT INFORMATION
  Report Type: Spontaneous
  Country: US (occurrence: US)
  Receive Date: 20230613
  Receipt Date: 20230613
  Transmission Date: 20230721
  Serious: No
  Sender: FDA-Public Use
  Company Number: US-RIGEL PHARMACEUTICALS, INC.-2022FOS000915

PATIENT
  Sex: Female
  Weight: 77.098 kg

DRUGS (6)
  1. TAVALISSE [Suspect]
     Active Substance: FOSTAMATINIB
     Indication: Immune thrombocytopenia
     Dosage: 150 MG, BID
     Route: 048
     Dates: start: 20221129
  2. TAVALISSE [Suspect]
     Active Substance: FOSTAMATINIB
     Indication: Chronic lymphocytic leukaemia
     Dosage: 100 MG, BID
     Route: 048
     Dates: start: 20221027
  3. CALCIUM CARBONATE\CHOLECALCIFEROL [Concomitant]
     Active Substance: CALCIUM CARBONATE\CHOLECALCIFEROL
     Indication: Product used for unknown indication
     Dosage: UNK
  4. ELIQUIS [Concomitant]
     Active Substance: APIXABAN
     Indication: Product used for unknown indication
     Dosage: 5 MG, DAILY
  5. GLUCOSAMINE/CHONDROITIN [CHONDROITIN SULFATE SODIUM;GLUCOSAMINE HYDROC [Concomitant]
     Indication: Product used for unknown indication
     Dosage: UNK
  6. MULTI VITAMIN [ASCORBIC ACID;FOLIC ACID;NICOTINIC ACID;PYRIDOXINE HYDR [Concomitant]
     Indication: Product used for unknown indication
     Dosage: UNK

REACTIONS (5)
  - Arthralgia [Recovering/Resolving]
  - Paraesthesia [Unknown]
  - Oropharyngeal pain [Unknown]
  - Limb discomfort [Unknown]
  - Platelet count increased [Unknown]

NARRATIVE: CASE EVENT DATE: 20220101
